FAERS Safety Report 16542734 (Version 2)
Quarter: 2019Q3

REPORT INFORMATION
  Report Type: Report from Study
  Country: AU (occurrence: AU)
  Receive Date: 20190709
  Receipt Date: 20190729
  Transmission Date: 20191004
  Serious: Yes (Other)
  Sender: FDA-Public Use
  Company Number: AU-ROCHE-2090756

PATIENT
  Age: 38 Year
  Sex: Female

DRUGS (9)
  1. DOXYCYCLINE. [Concomitant]
     Active Substance: DOXYCYCLINE
     Dosage: 2 DAILY PC, STATUS: CHANGED
     Route: 065
     Dates: start: 20181123
  2. ACTEMRA [Suspect]
     Active Substance: TOCILIZUMAB
     Indication: RHEUMATOID ARTHRITIS
     Route: 042
     Dates: start: 20121227
  3. MICARDIS PLUS [Concomitant]
     Active Substance: HYDROCHLOROTHIAZIDE\TELMISARTAN
     Dosage: 40/12.5 MG TABLET, STATUS: PRESCRIBED
     Route: 065
     Dates: start: 20181123
  4. IMPLANON [Concomitant]
     Active Substance: ETONOGESTREL
     Dosage: IMPLANT 68 MG (WITH APPLICATOR) STAT, STATUS: PRES
     Route: 065
     Dates: start: 20180827
  5. ARAVA [Concomitant]
     Active Substance: LEFLUNOMIDE
     Dosage: STATUS: CHANGED
     Route: 065
     Dates: start: 20090825
  6. MOBIC [Concomitant]
     Active Substance: MELOXICAM
     Dosage: PC, STATUS: PRESCRIBED
     Route: 048
     Dates: start: 20170406
  7. PROLIA [Concomitant]
     Active Substance: DENOSUMAB
     Dosage: 60MG/ 1ML, 1 ML STAT, STATUS: PRESCRIBED
     Route: 065
     Dates: start: 20181012
  8. CODAPANE [Concomitant]
     Active Substance: ACETAMINOPHEN\CODEINE PHOSPHATE
     Dosage: STATUS: PRESCRIBED
     Route: 065
     Dates: start: 20180730
  9. CRESTOR [Concomitant]
     Active Substance: ROSUVASTATIN CALCIUM
     Dosage: STATUS: PRESCRIBED
     Route: 065
     Dates: start: 20160602

REACTIONS (16)
  - Device dislocation [Recovered/Resolved]
  - Neuropathic arthropathy [Unknown]
  - Joint dislocation [Unknown]
  - Rheumatoid arthritis [Unknown]
  - Arthritis [Unknown]
  - Impaired healing [Unknown]
  - Device dislocation [Unknown]
  - Foot operation [Unknown]
  - Arthralgia [Recovered/Resolved]
  - Swelling [Unknown]
  - Arthropathy [Recovered/Resolved]
  - Cellulitis [Recovered/Resolved]
  - Psoriatic arthropathy [Unknown]
  - Foot deformity [Unknown]
  - Contusion [Unknown]
  - Ankle deformity [Unknown]

NARRATIVE: CASE EVENT DATE: 20160115
